FAERS Safety Report 17258598 (Version 1)
Quarter: 2020Q1

REPORT INFORMATION
  Report Type: Spontaneous
  Country: US (occurrence: US)
  Receive Date: 20200110
  Receipt Date: 20200110
  Transmission Date: 20200409
  Serious: Yes (Other)
  Sender: FDA-Public Use
  Company Number: US-ASTRAZENECA-2020SE02960

PATIENT
  Sex: Male
  Weight: 83.9 kg

DRUGS (11)
  1. NEXIUM [Suspect]
     Active Substance: ESOMEPRAZOLE MAGNESIUM
     Indication: GASTROOESOPHAGEAL REFLUX DISEASE
     Dosage: GENERIC
     Route: 048
  2. CITIRIZINE [Concomitant]
  3. RANITIDINE. [Concomitant]
     Active Substance: RANITIDINE
  4. PEPTO-BISMOL [Concomitant]
     Active Substance: BISMUTH SUBSALICYLATE
  5. NEXIUM [Suspect]
     Active Substance: ESOMEPRAZOLE MAGNESIUM
     Indication: GASTROOESOPHAGEAL REFLUX DISEASE
     Dosage: TWO TIMES A DAY
     Route: 048
  6. AMLODIPINE [Concomitant]
     Active Substance: AMLODIPINE BESYLATE
  7. CLARITIN [Concomitant]
     Active Substance: LORATADINE
  8. ESCITALOPRAM [Concomitant]
     Active Substance: ESCITALOPRAM OXALATE
  9. ATORVASTATIN [Concomitant]
     Active Substance: ATORVASTATIN
  10. BABY ASPIRIN [Concomitant]
     Active Substance: ASPIRIN
  11. PROVENTIL [Concomitant]
     Active Substance: ALBUTEROL

REACTIONS (3)
  - Gastrooesophageal reflux disease [Unknown]
  - Intentional product misuse [Unknown]
  - Myocardial infarction [Unknown]
